FAERS Safety Report 8800879 (Version 7)
Quarter: 2013Q4

REPORT INFORMATION
  Report Type: Report from Study
  Country: US (occurrence: US)
  Receive Date: 20120921
  Receipt Date: 20131230
  Transmission Date: 20140711
  Serious: Yes (Other)
  Sender: FDA-Public Use
  Company Number: US-BRISTOL-MYERS SQUIBB COMPANY-16961393

PATIENT
  Age: 66 Year
  Sex: Female

DRUGS (6)
  1. SAXAGLIPTIN [Suspect]
     Indication: TYPE 2 DIABETES MELLITUS
     Dosage: INTERRUPTED ON 12SEP11  AND RESUMED ON 02NOV11?LAST DOSE: 17JUL2012
     Dates: start: 20110516
  2. NOVOLOG [Suspect]
     Indication: TYPE 2 DIABETES MELLITUS
     Dosage: 13SEP11-20SEP11:30IU/U?21SEP11-ONG:1IU/U.?07OCT11-ONG:36IU/U
     Dates: start: 20110913
  3. LEVEMIR [Suspect]
     Indication: TYPE 2 DIABETES MELLITUS
     Dosage: 09OCT11-1NOV11:55IU/UNITS?02NOV11-ONGOIN:50IU/UNITS
     Dates: start: 20111009
  4. COUMADIN [Suspect]
  5. ASPIRIN [Concomitant]
     Dosage: 1DF: ={ 100 MG
     Dates: start: 20110803
  6. TYLENOL [Concomitant]
     Dates: start: 20110919

REACTIONS (2)
  - Toxicity to various agents [Recovered/Resolved]
  - Hypotension [Recovered/Resolved]
